FAERS Safety Report 7793810-4 (Version None)
Quarter: 2011Q4

REPORT INFORMATION
  Report Type: 
  Country: None (occurrence: None)
  Receive Date: 20111003
  Receipt Date: 20110926
  Transmission Date: 20120403
  Serious: Yes (Other)
  Sender: FDA-Public Use
  Company Number: PHHY2009CA17707

PATIENT
  Sex: Female

DRUGS (2)
  1. SANDOSTATIN LAR [Suspect]
     Indication: ACROMEGALY
     Dosage: 20 MG, QMO
     Route: 030
     Dates: start: 20090312
  2. SANDOSTATIN LAR [Suspect]
     Dosage: 30 MG, EVERY 4 WEEKS
     Route: 030

REACTIONS (25)
  - NASAL CONGESTION [None]
  - CHEST DISCOMFORT [None]
  - ABDOMINAL PAIN UPPER [None]
  - SNEEZING [None]
  - COUGH [None]
  - ABDOMINAL DISTENSION [None]
  - INJECTION SITE SWELLING [None]
  - OROPHARYNGEAL PAIN [None]
  - FATIGUE [None]
  - PULMONARY CONGESTION [None]
  - CHEST PAIN [None]
  - INJECTION SITE REACTION [None]
  - RHINITIS [None]
  - INJECTION SITE PAIN [None]
  - INFLUENZA [None]
  - DRY THROAT [None]
  - THROAT IRRITATION [None]
  - PYREXIA [None]
  - DIZZINESS [None]
  - BLOOD PRESSURE INCREASED [None]
  - RASH GENERALISED [None]
  - EYE PAIN [None]
  - UPPER RESPIRATORY TRACT INFECTION [None]
  - MALAISE [None]
  - SUPERFICIAL INJURY OF EYE [None]
